FAERS Safety Report 10239484 (Version 5)
Quarter: 2017Q3

REPORT INFORMATION
  Report Type: Spontaneous
  Country: US (occurrence: US)
  Receive Date: 20140616
  Receipt Date: 20170922
  Transmission Date: 20171127
  Serious: Yes (Disabling)
  Sender: FDA-Public Use
  Company Number: US-009507513-1406USA007807

PATIENT
  Sex: Male
  Weight: 87.08 kg

DRUGS (7)
  1. PROSCAR [Suspect]
     Active Substance: FINASTERIDE
     Indication: ANDROGENETIC ALOPECIA
     Dosage: 5 MG, UNK
     Route: 048
     Dates: start: 20010316
  2. FINASTERIDE. [Suspect]
     Active Substance: FINASTERIDE
     Dosage: 1/4 OF 5MG TAB DAILY, 1.25MG
     Route: 048
  3. PROPECIA [Suspect]
     Active Substance: FINASTERIDE
     Indication: PRODUCT USED FOR UNKNOWN INDICATION
     Dosage: UNK, UNKNOWN
     Route: 048
     Dates: end: 201111
  4. FINASTERIDE. [Suspect]
     Active Substance: FINASTERIDE
     Indication: ANDROGENETIC ALOPECIA
     Dosage: 5 MG, UNK
     Route: 048
     Dates: start: 2006, end: 20111123
  5. PROSCAR [Suspect]
     Active Substance: FINASTERIDE
     Dosage: 1/4 OF 5MG TAB DAILY, 1.25MG
     Route: 048
     Dates: start: 20040122, end: 20080911
  6. PROSCAR [Suspect]
     Active Substance: FINASTERIDE
     Dosage: 1/2 OF 5MG TAB DAILY, 2.5MG
     Route: 048
     Dates: start: 20080911, end: 20120413
  7. FINASTERIDE. [Suspect]
     Active Substance: FINASTERIDE
     Dosage: 1/2 OF 5MG TAB DAILY, 2.5MG
     Route: 048

REACTIONS (85)
  - Depression [Not Recovered/Not Resolved]
  - Ejaculation disorder [Not Recovered/Not Resolved]
  - Stress [Unknown]
  - Inflammation [Not Recovered/Not Resolved]
  - Solar lentigo [Not Recovered/Not Resolved]
  - Erythema [Not Recovered/Not Resolved]
  - Dysbacteriosis [Not Recovered/Not Resolved]
  - Abdominal distension [Not Recovered/Not Resolved]
  - Flatulence [Not Recovered/Not Resolved]
  - Cold sweat [Not Recovered/Not Resolved]
  - Urine analysis abnormal [Not Recovered/Not Resolved]
  - Cognitive disorder [Not Recovered/Not Resolved]
  - Chronic fatigue syndrome [Not Recovered/Not Resolved]
  - Benign neoplasm of eyelid [Unknown]
  - Flushing [Unknown]
  - Drug ineffective [Unknown]
  - Overgrowth fungal [Not Recovered/Not Resolved]
  - Nail disorder [Not Recovered/Not Resolved]
  - Gastrointestinal sounds abnormal [Not Recovered/Not Resolved]
  - Blood follicle stimulating hormone increased [Not Recovered/Not Resolved]
  - Low density lipoprotein increased [Not Recovered/Not Resolved]
  - Ejaculation failure [Not Recovered/Not Resolved]
  - Anhedonia [Unknown]
  - Disturbance in attention [Not Recovered/Not Resolved]
  - Laceration [Unknown]
  - Melanocytic naevus [Unknown]
  - Haemangioma of skin [Not Recovered/Not Resolved]
  - Thyroid disorder [Unknown]
  - Alopecia [Not Recovered/Not Resolved]
  - Eczema vesicular [Not Recovered/Not Resolved]
  - Macule [Not Recovered/Not Resolved]
  - Blood oestrogen increased [Not Recovered/Not Resolved]
  - Sexual dysfunction [Not Recovered/Not Resolved]
  - Libido decreased [Not Recovered/Not Resolved]
  - Sexual inhibition [Unknown]
  - Melanocytic naevus [Unknown]
  - Keratosis pilaris [Unknown]
  - Hair texture abnormal [Not Recovered/Not Resolved]
  - Scar [Not Recovered/Not Resolved]
  - Faeces pale [Not Recovered/Not Resolved]
  - Vision blurred [Not Recovered/Not Resolved]
  - Feeling abnormal [Not Recovered/Not Resolved]
  - Wrong technique in product usage process [Unknown]
  - Partner stress [Unknown]
  - Infection [Unknown]
  - Candida infection [Unknown]
  - Tonsillectomy [Unknown]
  - Decreased interest [Unknown]
  - Penile size reduced [Not Recovered/Not Resolved]
  - Papule [Not Recovered/Not Resolved]
  - Hypoglycaemia [Not Recovered/Not Resolved]
  - Muscle atrophy [Not Recovered/Not Resolved]
  - Erectile dysfunction [Not Recovered/Not Resolved]
  - Apathy [Not Recovered/Not Resolved]
  - Melanocytic naevus [Unknown]
  - Nightmare [Unknown]
  - Food poisoning [Unknown]
  - Hair colour changes [Not Recovered/Not Resolved]
  - Haemorrhoids [Not Recovered/Not Resolved]
  - Peripheral swelling [Not Recovered/Not Resolved]
  - Tremor [Not Recovered/Not Resolved]
  - Anxiety [Not Recovered/Not Resolved]
  - Social anxiety disorder [Unknown]
  - Chest pain [Unknown]
  - Emotional disorder [Not Recovered/Not Resolved]
  - Muscle injury [Not Recovered/Not Resolved]
  - Nail discolouration [Not Recovered/Not Resolved]
  - Dry skin [Not Recovered/Not Resolved]
  - Tinnitus [Not Recovered/Not Resolved]
  - Tri-iodothyronine decreased [Not Recovered/Not Resolved]
  - Memory impairment [Not Recovered/Not Resolved]
  - Dissociation [Not Recovered/Not Resolved]
  - Drug administration error [Unknown]
  - Papule [Unknown]
  - Spider naevus [Not Recovered/Not Resolved]
  - Dermal cyst [Unknown]
  - Weight decreased [Unknown]
  - Malabsorption [Unknown]
  - Selective IgA immunodeficiency [Unknown]
  - Nasal septum deviation [Unknown]
  - Asthma [Unknown]
  - Pityriasis rosea [Not Recovered/Not Resolved]
  - Impaired healing [Not Recovered/Not Resolved]
  - Restless legs syndrome [Not Recovered/Not Resolved]
  - Muscle twitching [Not Recovered/Not Resolved]

NARRATIVE: CASE EVENT DATE: 2001
